FAERS Safety Report 6495576-7 (Version None)
Quarter: 2009Q4

REPORT INFORMATION
  Report Type: 
  Country: None (occurrence: None)
  Receive Date: 20091214
  Receipt Date: 20090716
  Transmission Date: 20100525
  Serious: No
  Sender: FDA-Public Use
  Company Number: US-BRISTOL-MYERS SQUIBB COMPANY-14705180

PATIENT
  Age: 2 Decade
  Sex: Female

DRUGS (2)
  1. ABILIFY [Suspect]
     Indication: DEPRESSION
     Dates: start: 20090101, end: 20090101
  2. LEXAPRO [Concomitant]
     Indication: DEPRESSION

REACTIONS (1)
  - VISION BLURRED [None]
